FAERS Safety Report 4615950-0 (Version None)
Quarter: 2005Q1

REPORT INFORMATION
  Report Type: 
  Country: None (occurrence: None)
  Receive Date: 20050318
  Receipt Date: 20050302
  Transmission Date: 20050727
  Serious: Yes (Hospitalization)
  Sender: FDA-Public Use
  Company Number: S05-FRA-01002-01

PATIENT
  Sex: Male

DRUGS (4)
  1. CITALOPRAM HYDROBROMIDE [Suspect]
     Indication: NEURALGIA
     Dosage: 20 MG QD PO
     Route: 048
  2. CITALOPRAM HYDROBROMIDE [Suspect]
     Indication: NEURALGIA
     Dosage: 10 MG QOD PO
     Route: 048
  3. CLONAZEPAM [Concomitant]
  4. BISOPROLOL FUMARATE [Concomitant]

REACTIONS (4)
  - DRUG INEFFECTIVE [None]
  - MYALGIA [None]
  - PARAESTHESIA [None]
  - RADICULAR PAIN [None]
